FAERS Safety Report 19245482 (Version 4)
Quarter: 2021Q3

REPORT INFORMATION
  Report Type: Spontaneous
  Country: US (occurrence: US)
  Receive Date: 20210511
  Receipt Date: 20210716
  Transmission Date: 20211014
  Serious: Yes (Other)
  Sender: FDA-Public Use
  Company Number: US-ALXN-A202105433

PATIENT
  Age: 45 Year
  Sex: Male

DRUGS (2)
  1. PFIZER?BIONTECH COVID?19 VACCINE [Suspect]
     Active Substance: TOZINAMERAN
     Indication: COVID-19 IMMUNISATION
     Route: 065
  2. ULTOMIRIS [Suspect]
     Active Substance: RAVULIZUMAB-CWVZ
     Indication: PAROXYSMAL NOCTURNAL HAEMOGLOBINURIA
     Route: 065

REACTIONS (6)
  - Myalgia [Recovered/Resolved]
  - Haemoglobinuria [Unknown]
  - Fatigue [Recovered/Resolved]
  - Haemoglobin decreased [Unknown]
  - Pyrexia [Recovered/Resolved]
  - Headache [Recovered/Resolved]
